FAERS Safety Report 17222794 (Version 1)
Quarter: 2020Q1

REPORT INFORMATION
  Report Type: Spontaneous
  Country: GB (occurrence: GB)
  Receive Date: 20200102
  Receipt Date: 20200102
  Transmission Date: 20200409
  Serious: Yes (Disabling, Other)
  Sender: FDA-Public Use
  Company Number: GB-ROCHE-2488705

PATIENT
  Sex: Female

DRUGS (1)
  1. OCREVUS [Suspect]
     Active Substance: OCRELIZUMAB
     Indication: RELAPSING-REMITTING MULTIPLE SCLEROSIS
     Dosage: DATE OF SECOND DOSE OF 300 MG WAS 21/NOV/2019
     Route: 065

REACTIONS (4)
  - Palpitations [Recovered/Resolved]
  - Flushing [Recovered/Resolved]
  - Feeling hot [Unknown]
  - Headache [Not Recovered/Not Resolved]
